FAERS Safety Report 6154389-6 (Version None)
Quarter: 2009Q2

REPORT INFORMATION
  Report Type: 
  Country: None (occurrence: None)
  Receive Date: 20090414
  Receipt Date: 20090407
  Transmission Date: 20091009
  Serious: Yes (Other)
  Sender: FDA-Public Use
  Company Number: US-ASTRAZENECA-2007UW21043

PATIENT
  Sex: Female
  Weight: 80.7 kg

DRUGS (11)
  1. ARIMIDEX [Suspect]
     Indication: BREAST CANCER FEMALE
     Route: 048
     Dates: start: 20060509
  2. LOTENSIN [Concomitant]
     Indication: HYPERTENSION
  3. MICARDIS [Concomitant]
  4. HYDROCHLOROTHIAZIDE [Concomitant]
  5. ASPIRIN [Concomitant]
  6. VITAMINS [Concomitant]
  7. CALCIUM [Concomitant]
  8. GLUCOSAMINE [Concomitant]
  9. ZETIA [Concomitant]
     Indication: HYPERLIPIDAEMIA
  10. VITAMIN B-12 [Concomitant]
  11. LUMIGAN [Concomitant]

REACTIONS (7)
  - ALOPECIA [None]
  - AMNESIA [None]
  - BLOOD PRESSURE INCREASED [None]
  - CARPAL TUNNEL SYNDROME [None]
  - COUGH [None]
  - MUSCULOSKELETAL STIFFNESS [None]
  - TRIGGER FINGER [None]
